FAERS Safety Report 5254604-7 (Version None)
Quarter: 2007Q1

REPORT INFORMATION
  Report Type: 
  Country: None (occurrence: None)
  Receive Date: 20070302
  Receipt Date: 20070220
  Transmission Date: 20070707
  Serious: Yes (Other)
  Sender: FDA-Public Use
  Company Number: JP-PFIZER INC-2007014339

PATIENT
  Age: 12 Year
  Sex: Female

DRUGS (4)
  1. GABAPEN [Suspect]
     Dosage: DAILY DOSE:2400MG
     Route: 048
  2. TEGRETOL [Concomitant]
     Route: 048
  3. NITRAZEPAM [Concomitant]
     Route: 048
     Dates: start: 20070202
  4. DEPROMEL [Concomitant]
     Route: 048
     Dates: start: 20070202

REACTIONS (1)
  - AUTISM [None]
